FAERS Safety Report 7801413-8 (Version None)
Quarter: 2011Q4

REPORT INFORMATION
  Report Type: 
  Country: None (occurrence: None)
  Receive Date: 20111006
  Receipt Date: 20111006
  Transmission Date: 20120403
  Serious: Yes (Hospitalization)
  Sender: FDA-Public Use
  Company Number: None

PATIENT
  Age: 93 Year
  Sex: Female
  Weight: 76.8 kg

DRUGS (13)
  1. LISINOPRIL [Concomitant]
  2. SERTRALINE HYDROCHLORIDE [Concomitant]
  3. MIRALAX [Concomitant]
  4. XALATEN [Concomitant]
  5. PROMETHAZINE [Concomitant]
  6. MYLANTA [Concomitant]
  7. GUAIFENESIN [Concomitant]
  8. GABAPENTIN [Concomitant]
  9. VIT B12 [Concomitant]
  10. PEPCID [Concomitant]
  11. WARFARIN SODIUM [Suspect]
     Indication: ATRIAL FIBRILLATION
     Dosage: 5MG DAILY PO RECENT
     Route: 048
  12. VICODIN [Concomitant]
  13. NASONEX [Concomitant]

REACTIONS (3)
  - HYPOVOLAEMIC SHOCK [None]
  - HAEMATOMA [None]
  - LACERATION [None]
